FAERS Safety Report 8998700 (Version 2)
Quarter: 2013Q1

REPORT INFORMATION
  Report Type: Spontaneous
  Country: US (occurrence: US)
  Receive Date: 20130103
  Receipt Date: 20130110
  Transmission Date: 20140127
  Serious: Yes (Other)
  Sender: FDA-Public Use
  Company Number: US-PFIZER INC-2013001256

PATIENT
  Age: 84 Year
  Sex: Female
  Weight: 48.53 kg

DRUGS (3)
  1. EFFEXOR [Suspect]
     Indication: DEPRESSION
     Dosage: 75 MG, DAILY
     Dates: start: 20121128, end: 201212
  2. ZOLOFT [Suspect]
     Indication: DEPRESSION
     Dosage: (STRENGTH 50 MG) DAILY
     Dates: end: 20121127
  3. SYNTHROID [Suspect]
     Indication: THYROID DISORDER
     Dosage: 88 UG, DAILY

REACTIONS (11)
  - Suicidal ideation [Not Recovered/Not Resolved]
  - Aphagia [Not Recovered/Not Resolved]
  - Thinking abnormal [Not Recovered/Not Resolved]
  - Nausea [Not Recovered/Not Resolved]
  - Nervousness [Not Recovered/Not Resolved]
  - Anxiety [Not Recovered/Not Resolved]
  - Feeling jittery [Not Recovered/Not Resolved]
  - Weight decreased [Not Recovered/Not Resolved]
  - Insomnia [Not Recovered/Not Resolved]
  - Drug ineffective [Unknown]
  - Dizziness [Not Recovered/Not Resolved]
